FAERS Safety Report 12037092 (Version 1)
Quarter: 2016Q1

REPORT INFORMATION
  Report Type: Spontaneous
  Country: US (occurrence: None)
  Receive Date: 20160205
  Receipt Date: 20160205
  Transmission Date: 20160526
  Serious: Yes (Other)
  Sender: FDA-Public Use
  Company Number: None

PATIENT
  Age: 42 Year
  Sex: Female
  Weight: 111.13 kg

DRUGS (4)
  1. TRAZODONE [Concomitant]
     Active Substance: TRAZODONE HYDROCHLORIDE
  2. LATUDA [Concomitant]
     Active Substance: LURASIDONE HYDROCHLORIDE
  3. EFFEXOR XR [Suspect]
     Active Substance: VENLAFAXINE HYDROCHLORIDE
     Indication: BIPOLAR DISORDER
     Dosage: 1 PILL
     Route: 048
     Dates: start: 2014, end: 20151215
  4. XANAX [Concomitant]
     Active Substance: ALPRAZOLAM

REACTIONS (7)
  - Muscle spasms [None]
  - Tension [None]
  - Headache [None]
  - Pain [None]
  - Myalgia [None]
  - Facial pain [None]
  - Sensory disturbance [None]

NARRATIVE: CASE EVENT DATE: 20151128
